FAERS Safety Report 8836388 (Version 1)
Quarter: 2012Q4

REPORT INFORMATION
  Report Type: 
  Country: US (occurrence: US)
  Receive Date: 20121011
  Receipt Date: 20121011
  Transmission Date: 20130627
  Serious: No
  Sender: FDA-Public Use
  Company Number: US-NOVEN-12US005111

PATIENT
  Sex: Male

DRUGS (4)
  1. FENTANYL [Suspect]
     Indication: ARTHRITIS
     Dosage: 50 ug/hr q 72hrs
     Route: 062
     Dates: start: 2011
  2. FENTANYL [Suspect]
     Indication: PAIN IN EXTREMITY
  3. PERCOCET                           /00446701/ [Concomitant]
     Indication: ARTHRITIS
     Route: 048
  4. PERCOCET                           /00446701/ [Concomitant]
     Indication: PAIN IN EXTREMITY

REACTIONS (4)
  - Application site irritation [Recovered/Resolved]
  - Irritability [Recovering/Resolving]
  - Drug withdrawal syndrome [Recovered/Resolved]
  - Application site pruritus [Recovered/Resolved]
